FAERS Safety Report 8259596-4 (Version None)
Quarter: 2012Q2

REPORT INFORMATION
  Report Type: 
  Country: None (occurrence: None)
  Receive Date: 20120404
  Receipt Date: 20120329
  Transmission Date: 20120825
  Serious: Yes (Hospitalization)
  Sender: FDA-Public Use
  Company Number: PHEH2012US006714

PATIENT
  Sex: Female

DRUGS (12)
  1. SOLUMEROL [Concomitant]
     Route: 048
  2. PLAVIX [Concomitant]
  3. ASPIRIN [Concomitant]
  4. VICTAZA [Concomitant]
  5. PANTOPRAZOLE SODIUM [Concomitant]
     Dosage: 1 DF, QD
  6. CRESTOR [Concomitant]
     Dosage: 1 DF, QD
     Route: 048
  7. HYDROCODONE BITARTRATE AND ACETAMINOPHEN [Concomitant]
  8. FLUOXETINE HYDROCHLORIDE [Concomitant]
  9. SEROQUEL [Concomitant]
  10. GILENYA [Suspect]
     Indication: MULTIPLE SCLEROSIS
     Dosage: 0.5 MG, DAILY
     Route: 048
     Dates: start: 20110701
  11. POTASSIUM CHLORIDE [Concomitant]
     Dosage: 1 DF, BID
  12. FUROSEMIDE [Concomitant]
     Dosage: 1 DF, QD

REACTIONS (6)
  - CORONARY ARTERY DISEASE [None]
  - SENSORY DISTURBANCE [None]
  - PALPITATIONS [None]
  - CORONARY ARTERY OCCLUSION [None]
  - MUSCLE SPASMS [None]
  - TEMPERATURE INTOLERANCE [None]
